FAERS Safety Report 6115840-0 (Version None)
Quarter: 2009Q1

REPORT INFORMATION
  Report Type: 
  Country: None (occurrence: None)
  Receive Date: 20090311
  Receipt Date: 20090303
  Transmission Date: 20090719
  Serious: Yes (Other)
  Sender: FDA-Public Use
  Company Number: 2008-03586

PATIENT

DRUGS (1)
  1. VELCADE [Suspect]
     Indication: CHRONIC MYELOMONOCYTIC LEUKAEMIA
     Dosage: 1.6 MG/M2, INTRAVENOUS
     Route: 042

REACTIONS (1)
  - MONOCYTOSIS [None]
